FAERS Safety Report 6725693-5 (Version None)
Quarter: 2010Q2

REPORT INFORMATION
  Report Type: 
  Country: None (occurrence: None)
  Receive Date: 20100514
  Receipt Date: 20100429
  Transmission Date: 20101027
  Serious: Yes (Other)
  Sender: FDA-Public Use
  Company Number: CN-SANOFI-AVENTIS-2010SA026386

PATIENT
  Age: 5 Year
  Sex: Male

DRUGS (14)
  1. FLUDARABINE PHOSPHATE [Suspect]
     Indication: BONE MARROW CONDITIONING REGIMEN
     Route: 048
  2. BUSULPHAN [Suspect]
     Indication: BONE MARROW CONDITIONING REGIMEN
     Route: 065
  3. CYCLOPHOSPHAMIDE [Suspect]
     Indication: BONE MARROW CONDITIONING REGIMEN
     Route: 065
  4. ANTI-THYMOCYTE GLOBULIN RABBIT NOS [Suspect]
     Indication: BONE MARROW CONDITIONING REGIMEN
     Route: 065
  5. IMIPENEM AND CILASTATIN SODIUM [Concomitant]
  6. IMIPENEM AND CILASTATIN SODIUM [Concomitant]
  7. AMPICILLIN AND SULBACTAM [Concomitant]
  8. AMPICILLIN AND SULBACTAM [Concomitant]
  9. ANTITHYMOCYTE IMMUNOGLOBULIN [Concomitant]
     Indication: STEM CELL TRANSPLANT
  10. GRANULOCYTE COLONY STIMULATING FACTOR [Concomitant]
     Indication: IMMUNOSUPPRESSANT DRUG THERAPY
  11. CYCLOSPORINE [Concomitant]
     Indication: PROPHYLAXIS AGAINST GRAFT VERSUS HOST DISEASE
     Dates: start: 20071001
  12. METHOTREXATE [Concomitant]
     Indication: PROPHYLAXIS AGAINST GRAFT VERSUS HOST DISEASE
  13. MYCOPHENOLATE MOFETIL [Concomitant]
     Indication: PROPHYLAXIS AGAINST GRAFT VERSUS HOST DISEASE
  14. BASILIXIMAB [Concomitant]
     Indication: PROPHYLAXIS AGAINST GRAFT VERSUS HOST DISEASE

REACTIONS (4)
  - ACUTE GRAFT VERSUS HOST DISEASE IN SKIN [None]
  - CHRONIC GRAFT VERSUS HOST DISEASE [None]
  - FEBRILE NEUTROPENIA [None]
  - OFF LABEL USE [None]
